FAERS Safety Report 6866488-1 (Version None)
Quarter: 2010Q3

REPORT INFORMATION
  Report Type: 
  Country: None (occurrence: None)
  Receive Date: 20100722
  Receipt Date: 20100709
  Transmission Date: 20110219
  Serious: Yes (Hospitalization, Other)
  Sender: FDA-Public Use
  Company Number: PHHY2010BR45460

PATIENT
  Age: 38 Year
  Sex: Female

DRUGS (1)
  1. ELIDEL [Suspect]
     Dosage: UNK
     Dates: start: 20100704

REACTIONS (6)
  - APPLICATION SITE ERYTHEMA [None]
  - APPLICATION SITE PAIN [None]
  - PYREXIA [None]
  - RASH MACULAR [None]
  - SKIN BURNING SENSATION [None]
  - SKIN EXFOLIATION [None]
